FAERS Safety Report 5196941-0 (Version None)
Quarter: 2006Q4

REPORT INFORMATION
  Report Type: 
  Country: None (occurrence: None)
  Receive Date: 20061227
  Receipt Date: 20061214
  Transmission Date: 20070319
  Serious: Yes (Hospitalization)
  Sender: FDA-Public Use
  Company Number: 2006SP008477

PATIENT
  Age: 51 Year
  Sex: Male

DRUGS (3)
  1. PEG-INTRON [Suspect]
     Indication: HEPATITIS C
     Dosage: SC
     Route: 058
     Dates: start: 20060628, end: 20061213
  2. RIBAVIRIN [Suspect]
     Indication: HEPATITIS C
     Dosage: PO
     Route: 048
     Dates: start: 20060628, end: 20061213
  3. TYLENOL [Concomitant]

REACTIONS (3)
  - COLONIC OBSTRUCTION [None]
  - INFLUENZA LIKE ILLNESS [None]
  - LARGE INTESTINAL HAEMORRHAGE [None]
